FAERS Safety Report 8264997-4 (Version None)
Quarter: 2012Q2

REPORT INFORMATION
  Report Type: 
  Country: None (occurrence: None)
  Receive Date: 20120406
  Receipt Date: 20120328
  Transmission Date: 20120825
  Serious: Yes (Other)
  Sender: FDA-Public Use
  Company Number: JP-VERTEX PHARMACEUTICALS INC.-AE-2012-004721

PATIENT
  Age: 52 Year
  Sex: Male

DRUGS (11)
  1. PEG-INTRON [Concomitant]
     Indication: HEPATITIS C
     Route: 058
     Dates: start: 20120214
  2. REBETOL [Concomitant]
     Indication: HEPATITIS C
     Route: 048
     Dates: start: 20120214, end: 20120319
  3. DEXTROSE [Concomitant]
     Route: 048
  4. TELAVIC (TELAPREVIR) [Suspect]
     Indication: HEPATITIS C
     Route: 048
     Dates: start: 20120214
  5. PEG-INTRON [Concomitant]
     Route: 058
     Dates: start: 20120320
  6. OMEPRAZOLE [Concomitant]
     Route: 048
  7. REBETOL [Concomitant]
     Route: 048
     Dates: start: 20120320, end: 20120326
  8. REBETOL [Concomitant]
     Route: 048
     Dates: start: 20120327
  9. ADALAT [Concomitant]
     Route: 048
  10. NOVOLIN 70/30 [Concomitant]
     Route: 058
  11. PEG-INTRON [Concomitant]
     Route: 058
     Dates: start: 20120327

REACTIONS (1)
  - DRUG ERUPTION [None]
